FAERS Safety Report 11637350 (Version 1)
Quarter: 2015Q4

REPORT INFORMATION
  Report Type: Spontaneous
  Country: US (occurrence: US)
  Receive Date: 20151016
  Receipt Date: 20151016
  Transmission Date: 20160304
  Serious: Yes (Other)
  Sender: FDA-Public Use
  Company Number: US-PFIZER INC-2015345284

PATIENT
  Age: 24 Year
  Sex: Female

DRUGS (2)
  1. LIDOCAINE. [Concomitant]
     Active Substance: LIDOCAINE
     Dosage: UNK
     Route: 061
  2. METHYLPREDNISOLONE ACETATE. [Suspect]
     Active Substance: METHYLPREDNISOLONE ACETATE
     Indication: RHINITIS ALLERGIC
     Dosage: 0.5 ML, UNK
     Route: 013
     Dates: start: 19760720

REACTIONS (3)
  - Amaurosis [Recovered/Resolved with Sequelae]
  - Incorrect route of drug administration [Unknown]
  - Retinal artery embolism [Recovered/Resolved with Sequelae]

NARRATIVE: CASE EVENT DATE: 19760720
